FAERS Safety Report 7199195-9 (Version None)
Quarter: 2010Q4

REPORT INFORMATION
  Report Type: 
  Country: None (occurrence: None)
  Receive Date: 20101215
  Receipt Date: 20101129
  Transmission Date: 20110411
  Serious: Yes (Hospitalization)
  Sender: FDA-Public Use
  Company Number: AE 2010-381

PATIENT
  Age: 59 Year
  Sex: Male

DRUGS (9)
  1. PRIALT [Suspect]
     Indication: PAIN IN EXTREMITY
     Dosage: 0.05 UG HOURLY INTRATHECAL
     Route: 037
     Dates: start: 20101108
  2. LISINOPRIL [Concomitant]
  3. HYDROCHLOROTHIAZIDE [Concomitant]
  4. TOPROL-XL [Concomitant]
  5. ATIVAN [Concomitant]
  6. LEXAPRO [Concomitant]
  7. ZOCOR [Concomitant]
  8. AMBIEN [Concomitant]
  9. LOVAZA [Concomitant]

REACTIONS (13)
  - ANGINA UNSTABLE [None]
  - CONDITION AGGRAVATED [None]
  - DYSPNOEA [None]
  - HYPERAESTHESIA [None]
  - INSOMNIA [None]
  - MUSCLE SPASMS [None]
  - MUSCLE TIGHTNESS [None]
  - NAUSEA [None]
  - NO THERAPEUTIC RESPONSE [None]
  - PANIC ATTACK [None]
  - PARAESTHESIA [None]
  - PERIPHERAL COLDNESS [None]
  - RESTLESS LEGS SYNDROME [None]
